FAERS Safety Report 6762460-0 (Version None)
Quarter: 2010Q2

REPORT INFORMATION
  Report Type: 
  Country: None (occurrence: None)
  Receive Date: 20100609
  Receipt Date: 20100527
  Transmission Date: 20101027
  Serious: Yes (Other)
  Sender: FDA-Public Use
  Company Number: FR-GENZYME-CLOF-1000993

PATIENT
  Sex: Male
  Weight: 105 kg

DRUGS (1)
  1. EVOLTRA [Suspect]
     Indication: DRUG USE FOR UNKNOWN INDICATION
     Dosage: 5 MG/M2, UNK
     Route: 042
     Dates: start: 20100419, end: 20100428

REACTIONS (1)
  - MALIGNANT NEOPLASM PROGRESSION [None]
